FAERS Safety Report 8485092-5 (Version None)
Quarter: 2012Q3

REPORT INFORMATION
  Report Type: 
  Country: None (occurrence: None)
  Receive Date: 20120703
  Receipt Date: 20120621
  Transmission Date: 20120928
  Serious: Yes (Hospitalization, Other)
  Sender: FDA-Public Use
  Company Number: JP-VERTEX PHARMACEUTICALS INC.-AE-2012-008715

PATIENT
  Age: 66 Year
  Sex: Male

DRUGS (18)
  1. TELAVIC (TELAPREVIR) [Suspect]
     Route: 048
     Dates: start: 20120424, end: 20120507
  2. BISOPROLOL FUMARATE [Concomitant]
     Route: 048
     Dates: end: 20120323
  3. NIZATIDINE [Concomitant]
     Route: 048
     Dates: start: 20120306
  4. LENDEN D [Concomitant]
     Route: 048
     Dates: start: 20120307
  5. RIBAVIRIN [Concomitant]
     Indication: HEPATITIS C
     Route: 048
     Dates: start: 20120306, end: 20120318
  6. RIBAVIRIN [Concomitant]
     Route: 048
     Dates: start: 20120319, end: 20120430
  7. UBIRON [Concomitant]
     Route: 048
  8. RIBAVIRIN [Concomitant]
     Route: 048
     Dates: start: 20120501, end: 20120528
  9. RIBAVIRIN [Concomitant]
     Route: 048
     Dates: start: 20120529
  10. REBAMIPIDE [Concomitant]
     Route: 048
  11. TELAVIC (TELAPREVIR) [Suspect]
     Route: 048
     Dates: start: 20120508, end: 20120508
  12. ELIETEN [Concomitant]
     Route: 048
     Dates: start: 20120313
  13. LOSARTAN POTASSIUM [Concomitant]
     Route: 048
     Dates: start: 20120427
  14. TELAVIC (TELAPREVIR) [Suspect]
     Indication: HEPATITIS C
     Route: 048
     Dates: start: 20120306, end: 20120423
  15. PEG-INTRON [Concomitant]
     Indication: HEPATITIS C
     Route: 058
     Dates: start: 20120306, end: 20120513
  16. PROMACTA [Concomitant]
     Route: 048
     Dates: start: 20120306
  17. PEG-INTRON [Concomitant]
     Route: 058
     Dates: start: 20120514
  18. EPADEL S [Concomitant]
     Route: 048
     Dates: start: 20120306

REACTIONS (2)
  - RENAL IMPAIRMENT [None]
  - HAEMOGLOBIN DECREASED [None]
